FAERS Safety Report 10456557 (Version 1)
Quarter: 2014Q3

REPORT INFORMATION
  Report Type: Spontaneous
  Country: US (occurrence: None)
  Receive Date: 20140822
  Receipt Date: 20140822
  Transmission Date: 20150326
  Serious: Yes (Other)
  Sender: FDA-Public Use
  Company Number: 20140361

PATIENT
  Age: 70 Year
  Sex: Female

DRUGS (14)
  1. FLONASE (FLUTICASONE) [Concomitant]
  2. TYLENOL [Concomitant]
     Active Substance: ACETAMINOPHEN
  3. CRESTOR [Concomitant]
     Active Substance: ROSUVASTATIN CALCIUM
  4. IPRATROPIUM BROMIDE. [Concomitant]
     Active Substance: IPRATROPIUM BROMIDE
  5. EVAMIST (ESTRADIOL) [Concomitant]
  6. SINGULAIR [Concomitant]
     Active Substance: MONTELUKAST SODIUM
  7. XOPENOX (LEVALBUTEROL TARTRATE) [Concomitant]
  8. INJECTAFER [Suspect]
     Active Substance: FERRIC CARBOXYMALTOSE
     Indication: IRON DEFICIENCY ANAEMIA
     Route: 042
     Dates: start: 20140411, end: 20140411
  9. DEXILANT (ALPRAZOLAM) [Concomitant]
  10. INJECTAFER [Suspect]
     Active Substance: FERRIC CARBOXYMALTOSE
     Indication: DRUG INTOLERANCE
     Route: 042
     Dates: start: 20140411, end: 20140411
  11. ALTACE (RAMIPRIL) [Concomitant]
  12. XANAX [Concomitant]
     Active Substance: ALPRAZOLAM
  13. ALBUTEROL. [Concomitant]
     Active Substance: ALBUTEROL
  14. SYNTHROID [Concomitant]
     Active Substance: LEVOTHYROXINE SODIUM

REACTIONS (1)
  - Pruritus [None]

NARRATIVE: CASE EVENT DATE: 20140411
